FAERS Safety Report 7383130-4 (Version None)
Quarter: 2011Q1

REPORT INFORMATION
  Report Type: 
  Country: None (occurrence: None)
  Receive Date: 20110322
  Receipt Date: 20110315
  Transmission Date: 20110831
  Serious: Yes (Life-Threatening, Other)
  Sender: FDA-Public Use
  Company Number: 2011SP000458

PATIENT
  Age: 53 Year
  Sex: Female

DRUGS (15)
  1. CLONAZEPAM [Concomitant]
  2. DILAUDID [Concomitant]
  3. RANOLAZINE [Concomitant]
  4. AGGRENOX [Concomitant]
  5. LEVAQUIN [Concomitant]
  6. TOPIRAMATE [Concomitant]
  7. PEG-INTRON [Suspect]
     Indication: HEPATITIS C
     Dosage: QW;
     Dates: start: 20100923
  8. FENTANYL [Concomitant]
  9. BUSPAR [Concomitant]
  10. SEROQUEL [Concomitant]
  11. DULOXETIME HYDROCHLORIDE [Concomitant]
  12. RIBAVIRIN [Suspect]
     Indication: HEPATITIS C
     Dates: start: 20100923
  13. OMEPRAZOLE [Concomitant]
  14. ZOLPIDEM [Concomitant]
  15. CRESTOR [Concomitant]

REACTIONS (8)
  - CHEST PAIN [None]
  - DIARRHOEA [None]
  - CONDITION AGGRAVATED [None]
  - ABASIA [None]
  - CHRONIC OBSTRUCTIVE PULMONARY DISEASE [None]
  - LOSS OF CONSCIOUSNESS [None]
  - WEIGHT DECREASED [None]
  - DELIRIUM [None]
